FAERS Safety Report 8887352 (Version 1)
Quarter: 2012Q4

REPORT INFORMATION
  Report Type: Spontaneous
  Country: US (occurrence: None)
  Receive Date: 20121101
  Receipt Date: 20121101
  Transmission Date: 20130627
  Serious: No
  Sender: FDA-Public Use
  Company Number: None

PATIENT
  Sex: Male

DRUGS (3)
  1. PEGASYS [Suspect]
     Indication: HEPATITIS C
     Dosage: 180mg QWeek Sub Q
     Route: 058
     Dates: start: 20120405, end: 20121024
  2. RIBAPAK [Suspect]
     Dosage: 600mg BID Oral
     Route: 048
     Dates: start: 20120405, end: 20121024
  3. INCIVEK [Suspect]
     Dosage: 750mg TID Oral
     Route: 048
     Dates: start: 20120405, end: 20121024

REACTIONS (1)
  - Rash generalised [None]
